APPROVED DRUG PRODUCT: HYDROXYZINE HYDROCHLORIDE
Active Ingredient: HYDROXYZINE HYDROCHLORIDE
Strength: 50MG
Dosage Form/Route: TABLET;ORAL
Application: A089396 | Product #001
Applicant: HALSEY DRUG CO INC
Approved: May 2, 1988 | RLD: No | RS: No | Type: DISCN